FAERS Safety Report 8314247-5 (Version None)
Quarter: 2012Q2

REPORT INFORMATION
  Report Type: 
  Country: None (occurrence: None)
  Receive Date: 20120426
  Receipt Date: 20120418
  Transmission Date: 20120825
  Serious: Yes (Hospitalization)
  Sender: FDA-Public Use
  Company Number: PHHY2012ES033060

PATIENT
  Age: 52 Year
  Sex: Male

DRUGS (6)
  1. FLUMAZENIL [Concomitant]
  2. ESOMEPRAZOLE MAGNESIUM [Concomitant]
  3. RIBAVIRIN [Suspect]
     Indication: HEPATITIS C
     Dosage: 600 MG, BID
  4. PEGINTERFERON ALFA-2A [Suspect]
     Indication: HEPATITIS C
     Dosage: 180 UG, QW
  5. LORAZEPAM [Suspect]
     Dosage: 30 DF, UNK
  6. CITALOPRAM HYDROBROMIDE [Concomitant]

REACTIONS (18)
  - HYPERHIDROSIS [None]
  - INFLUENZA LIKE ILLNESS [None]
  - COUGH [None]
  - SUICIDE ATTEMPT [None]
  - SUICIDAL IDEATION [None]
  - INSOMNIA [None]
  - BLOOD TRIGLYCERIDES ABNORMAL [None]
  - PLATELET COUNT ABNORMAL [None]
  - IRRITABILITY [None]
  - INTENTIONAL OVERDOSE [None]
  - CONJUNCTIVITIS [None]
  - HAEMOGLOBIN ABNORMAL [None]
  - DEPRESSED MOOD [None]
  - DRY MOUTH [None]
  - DYSPNOEA [None]
  - NEUTROPHIL COUNT ABNORMAL [None]
  - DEPRESSION [None]
  - VISION BLURRED [None]
